FAERS Safety Report 6638990-9 (Version None)
Quarter: 2010Q1

REPORT INFORMATION
  Report Type: 
  Country: None (occurrence: None)
  Receive Date: 20100317
  Receipt Date: 20100311
  Transmission Date: 20100710
  Serious: Yes (Death, Disabling)
  Sender: FDA-Public Use
  Company Number: US-CELGENEUS-163-20785-09120050

PATIENT
  Sex: Female

DRUGS (5)
  1. THALOMID [Suspect]
     Indication: MULTIPLE MYELOMA
     Route: 048
     Dates: start: 20091010, end: 20091123
  2. THALOMID [Suspect]
     Route: 048
     Dates: start: 20081001, end: 20090101
  3. REVLIMID [Suspect]
     Indication: MULTIPLE MYELOMA
     Route: 048
     Dates: start: 20091201
  4. VELCADE [Suspect]
     Indication: MULTIPLE MYELOMA
     Route: 065
  5. DEXAMETHASONE [Suspect]
     Indication: MULTIPLE MYELOMA
     Route: 065

REACTIONS (2)
  - MULTIPLE MYELOMA [None]
  - NO THERAPEUTIC RESPONSE [None]
